FAERS Safety Report 10656776 (Version 3)
Quarter: 2015Q1

REPORT INFORMATION
  Report Type: Spontaneous
  Country: US (occurrence: US)
  Receive Date: 20141217
  Receipt Date: 20150126
  Transmission Date: 20150720
  Serious: Yes (Other)
  Sender: FDA-Public Use
  Company Number: US-BEH-2014047125

PATIENT
  Sex: Male

DRUGS (6)
  1. CARIMUNE [Suspect]
     Active Substance: HUMAN IMMUNOGLOBULIN G
  2. PREDNISONE. [Concomitant]
     Active Substance: PREDNISONE
  3. CETIRIZINE [Concomitant]
     Active Substance: CETIRIZINE HYDROCHLORIDE
  4. SUMATRIPTAN. [Concomitant]
     Active Substance: SUMATRIPTAN
  5. HIZENTRA [Suspect]
     Active Substance: HUMAN IMMUNOGLOBULIN G
     Dates: start: 20141217
  6. SULFASALAZINE. [Concomitant]
     Active Substance: SULFASALAZINE

REACTIONS (16)
  - Bronchial irritation [Unknown]
  - Infection [Unknown]
  - Anger [Unknown]
  - General physical health deterioration [Unknown]
  - Injection site swelling [Unknown]
  - Blood immunoglobulin A decreased [Unknown]
  - Dyspnoea [Unknown]
  - Injection site pain [Unknown]
  - Injection site bruising [Unknown]
  - Migraine [Unknown]
  - Tremor [Unknown]
  - Fatigue [Unknown]
  - Drug ineffective [Unknown]
  - Cough [Unknown]
  - Bone disorder [Unknown]
  - Pneumonia [Unknown]
